FAERS Safety Report 8141166-X (Version None)
Quarter: 2012Q1

REPORT INFORMATION
  Report Type: 
  Country: None (occurrence: None)
  Receive Date: 20120213
  Receipt Date: 20120124
  Transmission Date: 20120608
  Serious: Yes (Other)
  Sender: FDA-Public Use
  Company Number: 2012BN000020

PATIENT
  Age: 10 Month
  Sex: Male

DRUGS (7)
  1. MELPHALAN HYDROCHLORIDE [Suspect]
     Indication: RETINOBLASTOMA
     Dosage: 5 MG; ;IART
     Route: 013
  2. ETOPOSIDE [Concomitant]
  3. VINCRISTINE [Concomitant]
  4. HEPARIN [Concomitant]
  5. CARBOPLATIN [Concomitant]
  6. ASPIRIN [Concomitant]
  7. SULFATE [Concomitant]

REACTIONS (3)
  - RETINAL PIGMENT EPITHELIOPATHY [None]
  - CHOROIDAL DYSTROPHY [None]
  - EXTRAOCULAR MUSCLE DISORDER [None]
